FAERS Safety Report 9847045 (Version 2)
Quarter: 2014Q1

REPORT INFORMATION
  Report Type: Spontaneous
  Country: IT (occurrence: IT)
  Receive Date: 20140127
  Receipt Date: 20140130
  Transmission Date: 20141002
  Serious: Yes (Hospitalization)
  Sender: FDA-Public Use
  Company Number: IT-PFIZER INC-2014018212

PATIENT
  Age: 84 Year
  Sex: Male

DRUGS (13)
  1. TRIATEC [Suspect]
     Indication: HYPERTENSION
     Dosage: 5 MG, 2X/DAY
     Route: 048
     Dates: start: 20130101, end: 20131202
  2. ENALAPRIL [Suspect]
     Indication: HYPERTENSION
     Dosage: 20 MG, DAILY
     Route: 048
     Dates: start: 20130101, end: 20131202
  3. ATORVASTATIN [Concomitant]
     Dosage: UNK
  4. CALCITRIOL [Concomitant]
     Dosage: UNK
  5. TAMSULOSIN HYDROCHLORIDE [Concomitant]
  6. OMEPRAZOLE [Concomitant]
     Dosage: UNK
  7. AMLODIPINE [Concomitant]
     Dosage: UNK
  8. FOLIC ACID [Concomitant]
     Dosage: UNK
  9. COUMADIN [Concomitant]
     Dosage: UNK
  10. LASIX [Concomitant]
     Dosage: UNK
  11. NIFEREX [Concomitant]
     Dosage: UNK
  12. SPIRIVA [Concomitant]
     Dosage: UNK
  13. CARDURA [Concomitant]
     Dosage: UNK

REACTIONS (5)
  - Renal impairment [Unknown]
  - Hyperkalaemia [Unknown]
  - Anuria [Unknown]
  - Dysuria [Unknown]
  - Face oedema [Unknown]
